FAERS Safety Report 19498960 (Version 2)
Quarter: 2021Q3

REPORT INFORMATION
  Report Type: Spontaneous
  Country: JP (occurrence: JP)
  Receive Date: 20210707
  Receipt Date: 20210729
  Transmission Date: 20211014
  Serious: Yes (Other)
  Sender: FDA-Public Use
  Company Number: NVSJ2021JP009844

PATIENT
  Age: 30 Year
  Sex: Female

DRUGS (3)
  1. IMUSERA [Suspect]
     Active Substance: FINGOLIMOD HYDROCHLORIDE
     Indication: MULTIPLE SCLEROSIS
     Dosage: UNK, DAILY
     Route: 065
  2. IMUSERA [Suspect]
     Active Substance: FINGOLIMOD HYDROCHLORIDE
     Dosage: UNK, 3 TIMES/WEEK
     Route: 065
  3. IMUSERA [Suspect]
     Active Substance: FINGOLIMOD HYDROCHLORIDE
     Dosage: UNK, 2 TIMES/WEEK
     Route: 065

REACTIONS (3)
  - Central nervous system lesion [Unknown]
  - Lymphopenia [Unknown]
  - Off label use [Unknown]
